FAERS Safety Report 6511459-8 (Version None)
Quarter: 2009Q4

REPORT INFORMATION
  Report Type: 
  Country: None (occurrence: None)
  Receive Date: 20091217
  Receipt Date: 20091202
  Transmission Date: 20100525
  Serious: Yes (Hospitalization)
  Sender: FDA-Public Use
  Company Number: 2009SP033713

PATIENT
  Age: 22 Year
  Sex: Female
  Weight: 81.6475 kg

DRUGS (4)
  1. NUVARING [Suspect]
     Indication: CONTRACEPTION
     Dates: start: 20070812
  2. IBUPROFEN [Concomitant]
  3. LOPRESSOR [Concomitant]
  4. LORTAB [Concomitant]

REACTIONS (18)
  - ANXIETY [None]
  - BACK PAIN [None]
  - DEPRESSION [None]
  - FLANK PAIN [None]
  - HAEMOGLOBIN DECREASED [None]
  - HEADACHE [None]
  - HYDRONEPHROSIS [None]
  - HYPERTENSION [None]
  - JOINT DISLOCATION [None]
  - JOINT SPRAIN [None]
  - LOBAR PNEUMONIA [None]
  - NEPHROLITHIASIS [None]
  - PELVIC PAIN [None]
  - PLATELET COUNT INCREASED [None]
  - PLEURAL EFFUSION [None]
  - PNEUMONIA [None]
  - PULMONARY EMBOLISM [None]
  - ROAD TRAFFIC ACCIDENT [None]
